FAERS Safety Report 4941537-6 (Version None)
Quarter: 2006Q1

REPORT INFORMATION
  Report Type: 
  Country: None (occurrence: None)
  Receive Date: 20060307
  Receipt Date: 20060224
  Transmission Date: 20060701
  Serious: Yes (Death)
  Sender: FDA-Public Use
  Company Number: GBWYE441701MAR06

PATIENT
  Age: 24 Year
  Sex: Male

DRUGS (1)
  1. ANADIN IBUPROFEN (IBUPROFEN, TABLET, 0) [Suspect]
     Indication: PHARYNGOLARYNGEAL PAIN
     Dosage: ORAL
     Route: 048
     Dates: start: 20060201, end: 20060201

REACTIONS (3)
  - HYPERSENSITIVITY [None]
  - MULTI-ORGAN DISORDER [None]
  - STEVENS-JOHNSON SYNDROME [None]
